FAERS Safety Report 8069531-X (Version None)
Quarter: 2012Q1

REPORT INFORMATION
  Report Type: 
  Country: None (occurrence: None)
  Receive Date: 20120125
  Receipt Date: 20120119
  Transmission Date: 20120608
  Serious: Yes (Life-Threatening, Hospitalization)
  Sender: FDA-Public Use
  Company Number: US-BAYER-201030187NA

PATIENT
  Age: 37 Year
  Sex: Female
  Weight: 83.9 kg

DRUGS (6)
  1. NEXIUM [Concomitant]
     Dosage: UNK
     Dates: start: 20010101
  2. YAZ [Suspect]
     Dosage: UNK UNK, UNK
     Route: 048
     Dates: start: 20070601, end: 20080729
  3. LEVOXYL [Concomitant]
     Dosage: 0.1 MG, UNK
     Dates: start: 19980101
  4. YASMIN [Suspect]
     Dosage: UNK
     Dates: start: 20020401, end: 20030401
  5. YASMIN [Suspect]
     Dosage: UNK
     Dates: start: 20031101, end: 20040401
  6. CELEXA [Concomitant]
     Dosage: UNK
     Dates: start: 20030101

REACTIONS (10)
  - PULMONARY EMBOLISM [None]
  - CHOLECYSTITIS ACUTE [None]
  - FATIGUE [None]
  - CHEST PAIN [None]
  - DYSPNOEA [None]
  - CHOLECYSTITIS CHRONIC [None]
  - GALLBLADDER NON-FUNCTIONING [None]
  - OEDEMA PERIPHERAL [None]
  - ASTHENIA [None]
  - DEEP VEIN THROMBOSIS [None]
